FAERS Safety Report 8845474 (Version 1)
Quarter: 2012Q4

REPORT INFORMATION
  Report Type: Spontaneous
  Country: US (occurrence: None)
  Receive Date: 20121015
  Receipt Date: 20121015
  Transmission Date: 20130627
  Serious: Yes (Other)
  Sender: FDA-Public Use
  Company Number: US-009679

PATIENT
  Age: 72 Year
  Sex: Male
  Weight: 98.88 kg

DRUGS (6)
  1. DEGARELIX [Suspect]
     Indication: PROSTATE CANCER METASTATIC
     Route: 058
     Dates: start: 20110117
  2. CASODEX [Suspect]
     Indication: PRODUCT USED FOR UNKNOWN INDICATION
  3. ASPIRIN [Concomitant]
  4. CALCIUM [Concomitant]
  5. BLACKMORES MULTI VITAMIN + MINERAL [Concomitant]
  6. DENOSUMAB [Concomitant]

REACTIONS (1)
  - Convulsion [None]
